FAERS Safety Report 5496067-2 (Version None)
Quarter: 2007Q4

REPORT INFORMATION
  Report Type: 
  Country: None (occurrence: None)
  Receive Date: 20071025
  Receipt Date: 20070118
  Transmission Date: 20080405
  Serious: No
  Sender: FDA-Public Use
  Company Number: A0636131A

PATIENT
  Age: 80 Year
  Sex: Female

DRUGS (10)
  1. ADVAIR DISKUS 100/50 [Suspect]
     Indication: ASTHMA
     Dosage: 1PUFF TWICE PER DAY
     Route: 055
     Dates: start: 20061101, end: 20070101
  2. POTASSIUM CHLORIDE [Concomitant]
  3. UNKNOWN MEDICATION [Concomitant]
  4. MECLIZINE [Concomitant]
  5. LISINOPRIL [Concomitant]
  6. SINEMET [Concomitant]
  7. PLAVIX [Concomitant]
  8. UNKNOWN MEDICATION [Concomitant]
  9. SINGULAIR [Concomitant]
  10. CHOLESTYRAMINE [Concomitant]

REACTIONS (1)
  - LIP BLISTER [None]
